FAERS Safety Report 24856970 (Version 1)
Quarter: 2025Q1

REPORT INFORMATION
  Report Type: Spontaneous
  Country: US (occurrence: US)
  Receive Date: 20250117
  Receipt Date: 20250117
  Transmission Date: 20250409
  Serious: Yes (Hospitalization, Other)
  Sender: ORGANON
  Company Number: US-MLMSERVICE-20250103-PI318720-00275-2

PATIENT
  Age: 59 Year
  Sex: Female

DRUGS (6)
  1. REMERON [Suspect]
     Active Substance: MIRTAZAPINE
     Indication: Psychotherapy
     Dates: end: 2023
  2. QUETIAPINE [Suspect]
     Active Substance: QUETIAPINE
     Indication: Psychotherapy
     Dosage: 100 MILLIGRAM, QD
  3. QUETIAPINE [Suspect]
     Active Substance: QUETIAPINE
     Dosage: TITRATED TO 600 MG DAILY OVER EIGHT DAYS
  4. VALPROIC ACID [Suspect]
     Active Substance: VALPROIC ACID
     Indication: Psychotherapy
  5. SERTRALINE [Suspect]
     Active Substance: SERTRALINE HYDROCHLORIDE
     Indication: Psychotherapy
  6. DEFERIPRONE [Suspect]
     Active Substance: DEFERIPRONE
     Indication: Psychotherapy

REACTIONS (2)
  - Neuroleptic malignant syndrome [Recovered/Resolved]
  - Product use in unapproved indication [Unknown]
